FAERS Safety Report 10195612 (Version 1)
Quarter: 2014Q2

REPORT INFORMATION
  Report Type: Report from Study
  Country: FR (occurrence: FR)
  Receive Date: 20140527
  Receipt Date: 20140527
  Transmission Date: 20141212
  Serious: Yes (Hospitalization)
  Sender: FDA-Public Use
  Company Number: FR-ROCHE-1404575

PATIENT
  Sex: Female

DRUGS (8)
  1. RITUXIMAB [Suspect]
     Indication: RHEUMATOID ARTHRITIS
     Dosage: DAY 15, 27/NOV/2006
     Route: 041
     Dates: start: 20061113
  2. RITUXIMAB [Suspect]
     Dosage: DAY 15, 02/JUL/2007
     Route: 041
     Dates: start: 20070618
  3. RITUXIMAB [Suspect]
     Dosage: DAY 15, 11/APR/2008
     Route: 041
     Dates: start: 20080328
  4. RITUXIMAB [Suspect]
     Dosage: DAY 15 ON 14/OCT/2009
     Route: 041
     Dates: start: 20090925
  5. CORTANCYL [Concomitant]
     Route: 065
  6. CORTANCYL [Concomitant]
     Route: 065
     Dates: start: 20091014
  7. METHOTREXATE [Concomitant]
     Route: 065
     Dates: start: 20070702
  8. METHOTREXATE [Concomitant]
     Route: 065
     Dates: start: 20080411

REACTIONS (6)
  - Type 2 diabetes mellitus [Not Recovered/Not Resolved]
  - Hypersensitivity vasculitis [Recovered/Resolved]
  - Pharyngitis [Recovered/Resolved]
  - Glaucoma [Not Recovered/Not Resolved]
  - Sjogren^s syndrome [Not Recovered/Not Resolved]
  - Hypersensitivity [Recovered/Resolved]
